FAERS Safety Report 10715887 (Version 1)
Quarter: 2015Q1

REPORT INFORMATION
  Report Type: Report from Study
  Country: US (occurrence: None)
  Receive Date: 20150109
  Receipt Date: 20150109
  Transmission Date: 20150721
  Serious: Yes (Hospitalization, Disabling)
  Sender: FDA-Public Use
  Company Number: 2014SIPUSA00676

PATIENT
  Age: 86 Year
  Sex: Male

DRUGS (1)
  1. SIPULEUCEL-T [Suspect]
     Active Substance: SIPULEUCEL-T
     Indication: PROSTATE CANCER METASTATIC
     Route: 042
     Dates: start: 20140228, end: 20140228

REACTIONS (1)
  - Spinal cord compression [None]

NARRATIVE: CASE EVENT DATE: 20140329
